FAERS Safety Report 16597835 (Version 1)
Quarter: 2019Q3

REPORT INFORMATION
  Report Type: Spontaneous
  Country: US (occurrence: US)
  Receive Date: 20190718
  Receipt Date: 20190718
  Transmission Date: 20191004
  Serious: Yes (Disabling)
  Sender: FDA-Public Use
  Company Number: None

PATIENT
  Age: 55 Year
  Sex: Female
  Weight: 49.5 kg

DRUGS (15)
  1. ADDERALL [Concomitant]
     Active Substance: AMPHETAMINE ASPARTATE\AMPHETAMINE SULFATE\DEXTROAMPHETAMINE SACCHARATE\DEXTROAMPHETAMINE SULFATE
  2. VIT D [Concomitant]
     Active Substance: VITAMIN D NOS
  3. IMITREX PRN [Concomitant]
  4. TYLENOL [Concomitant]
     Active Substance: ACETAMINOPHEN
  5. ESTROGEN [Concomitant]
     Active Substance: ESTROGENS
  6. FISH OIL [Concomitant]
     Active Substance: FISH OIL
  7. WELLBUTRIN [Concomitant]
     Active Substance: BUPROPION HYDROCHLORIDE
  8. KLONOPIN [Concomitant]
     Active Substance: CLONAZEPAM
  9. MULTIVITAMIN [Concomitant]
     Active Substance: VITAMINS
  10. VOLTAREN [Concomitant]
     Active Substance: DICLOFENAC SODIUM
  11. CLARITIN [Concomitant]
     Active Substance: LORATADINE
  12. VITAMIN B12 [Concomitant]
     Active Substance: CYANOCOBALAMIN
  13. METHYLFOLATE [Concomitant]
     Active Substance: LEVOMEFOLATE CALCIUM
  14. AIMOVIG [Suspect]
     Active Substance: ERENUMAB-AOOE
     Indication: MIGRAINE
     Dosage: ?          QUANTITY:1 INJECTION(S);OTHER FREQUENCY:1/MONTH;?
     Route: 030
     Dates: start: 20181105, end: 20190612
  15. MAGNESIUM [Concomitant]
     Active Substance: MAGNESIUM

REACTIONS (4)
  - Motion sickness [None]
  - Fatigue [None]
  - Weight increased [None]
  - Arthritis [None]

NARRATIVE: CASE EVENT DATE: 20190616
